FAERS Safety Report 10175185 (Version 1)
Quarter: 2014Q2

REPORT INFORMATION
  Report Type: Spontaneous
  Country: US (occurrence: US)
  Receive Date: 20140515
  Receipt Date: 20140515
  Transmission Date: 20141212
  Serious: No
  Sender: FDA-Public Use
  Company Number: US-VIVUS-2014V1000057

PATIENT
  Age: 60 Year
  Sex: Female
  Weight: 78.54 kg

DRUGS (8)
  1. QSYMIA 3.75MG/23MG [Suspect]
     Indication: WEIGHT DECREASED
     Route: 048
     Dates: start: 20140124, end: 20140125
  2. PROPRANOLOL [Concomitant]
     Indication: BLOOD PRESSURE
     Dosage: SINCE 1990^S
     Route: 048
  3. PROPRANOLOL [Concomitant]
     Indication: MIGRAINE
  4. METFORMIN [Concomitant]
     Indication: METABOLIC SYNDROME
     Dosage: STARTED 4-5 YEARS AGO
     Route: 048
  5. ALDACTONE [Concomitant]
     Indication: BLOOD PRESSURE
     Dosage: STARTED 2-3 YEARS AGO
     Route: 048
  6. UNSPECIFIED ACID REFLUX MEDICATION [Concomitant]
     Indication: GASTROOESOPHAGEAL REFLUX DISEASE
     Dosage: STARTED 4-5 YEARS AGO
     Route: 048
  7. LOVAZA [Concomitant]
     Indication: SUPPLEMENTATION THERAPY
     Dosage: STARTED A COUPLE OF WEEKS AGO
     Route: 048
  8. FIORINAL [Concomitant]
     Indication: MIGRAINE
     Dosage: SINCE 1990^S
     Route: 048

REACTIONS (4)
  - Hypoacusis [Recovering/Resolving]
  - Tinnitus [Recovering/Resolving]
  - Migraine [Recovering/Resolving]
  - Memory impairment [Recovering/Resolving]
